FAERS Safety Report 10374961 (Version 1)
Quarter: 2014Q3

REPORT INFORMATION
  Report Type: Spontaneous
  Country: US (occurrence: US)
  Receive Date: 20140811
  Receipt Date: 20140811
  Transmission Date: 20150326
  Serious: Yes (Hospitalization, Other)
  Sender: FDA-Public Use
  Company Number: US-PAR PHARMACEUTICAL, INC-2014SCPR009320

PATIENT

DRUGS (12)
  1. IMIPRAMINE [Suspect]
     Active Substance: IMIPRAMINE
     Indication: PAIN
     Dosage: UNK, BID, 2-3 PUMPS TOPICALLY TO HIS FEET AND ANKLES
     Route: 061
  2. DULOXETINE [Concomitant]
     Active Substance: DULOXETINE
     Indication: PRODUCT USED FOR UNKNOWN INDICATION
     Dosage: UNK, UNKNOWN
     Route: 065
  3. ADDERALL [Concomitant]
     Active Substance: AMPHETAMINE ASPARTATE\AMPHETAMINE SULFATE\DEXTROAMPHETAMINE SACCHARATE\DEXTROAMPHETAMINE SULFATE
     Indication: PRODUCT USED FOR UNKNOWN INDICATION
     Dosage: UNK, AT LEAST TWICE IN THE 3 DAYS
     Route: 065
  4. MEFENAMIC ACID. [Suspect]
     Active Substance: MEFENAMIC ACID
     Indication: PAIN
     Dosage: UNK, BID, 2-3 PUMPS TOPICALLY TO HIS FEET AND ANKLES AND ANKLES
     Route: 061
  5. KETALAR [Suspect]
     Active Substance: KETAMINE HYDROCHLORIDE
     Indication: PAIN
     Dosage: UNK, BID, 2-3 PUMPS TOPICALLY TO HIS FEET AND ANKLES
     Route: 061
  6. ARIPIPRAZOLE [Concomitant]
     Active Substance: ARIPIPRAZOLE
     Indication: PRODUCT USED FOR UNKNOWN INDICATION
     Dosage: UNK, UNKNOWN
     Route: 065
  7. LIDOCAINE. [Suspect]
     Active Substance: LIDOCAINE
     Indication: PAIN
     Dosage: UNK, BID, 2-3 PUMPS TOPICALLY TO HIS FEET AND ANKLES
     Route: 061
  8. CLONIDINE. [Suspect]
     Active Substance: CLONIDINE
     Indication: PAIN
     Dosage: UNK, BID, 2-3 PUMPS TOPICALLY TO HIS FEET AND ANKLES
     Route: 061
  9. GABAPENTIN. [Suspect]
     Active Substance: GABAPENTIN
     Indication: PAIN
     Dosage: UNK, BID, 2-3 PUMPS TOPICALLY TO HIS FEET AND ANKLES
     Route: 061
  10. ZOLPIDEM [Concomitant]
     Active Substance: ZOLPIDEM\ZOLPIDEM TARTRATE
     Indication: PRODUCT USED FOR UNKNOWN INDICATION
     Dosage: UNK, UNKNOWN
     Route: 065
  11. CLONAZEPAM. [Concomitant]
     Active Substance: CLONAZEPAM
     Indication: PRODUCT USED FOR UNKNOWN INDICATION
     Dosage: UNK, UNKNOWN
     Route: 065
  12. OXYCODONE AND ACETAMINOPHEN [Concomitant]
     Active Substance: ACETAMINOPHEN\OXYCODONE\OXYCODONE HYDROCHLORIDE
     Indication: PRODUCT USED FOR UNKNOWN INDICATION
     Dosage: UNK, UNKNOWN
     Route: 065

REACTIONS (7)
  - Subarachnoid haemorrhage [Recovered/Resolved]
  - Vasculitis [Recovered/Resolved]
  - Off label use [Unknown]
  - Sinus bradycardia [None]
  - Toxicity to various agents [Recovered/Resolved]
  - Overdose [Unknown]
  - Hypertensive crisis [None]
